FAERS Safety Report 14572231 (Version 2)
Quarter: 2018Q1

REPORT INFORMATION
  Report Type: Spontaneous
  Country: US (occurrence: US)
  Receive Date: 20180226
  Receipt Date: 20180313
  Transmission Date: 20180509
  Serious: Yes (Other)
  Sender: FDA-Public Use
  Company Number: US-JNJFOC-20180229928

PATIENT
  Age: 32 Year
  Sex: Female
  Weight: 85.28 kg

DRUGS (2)
  1. TOPAMAX [Suspect]
     Active Substance: TOPIRAMATE
     Indication: MIGRAINE
     Dosage: 50 MG STRENGTH
     Route: 048
     Dates: start: 201802
  2. TOPAMAX [Suspect]
     Active Substance: TOPIRAMATE
     Indication: MIGRAINE
     Dosage: 25 MG STRENGTH
     Route: 048
     Dates: start: 20171229, end: 201802

REACTIONS (1)
  - Deep vein thrombosis [Unknown]
